FAERS Safety Report 8793863 (Version 1)
Quarter: 2012Q4

REPORT INFORMATION
  Report Type: 
  Country: US (occurrence: US)
  Receive Date: 20120918
  Receipt Date: 20120918
  Transmission Date: 20130627
  Serious: Yes (Death)
  Sender: FDA-Public Use
  Company Number: US-009507513-1209USA005188

PATIENT

DRUGS (6)
  1. JUVISYNC [Suspect]
     Indication: TYPE 1 DIABETES MELLITUS
     Dosage: 100/20mg, qd
     Route: 048
     Dates: start: 20120905, end: 20120909
  2. SIMVASTATIN [Concomitant]
  3. GLIPIZIDE [Concomitant]
  4. INSULIN [Concomitant]
  5. ADVAIR [Concomitant]
  6. COMBIVENT [Concomitant]

REACTIONS (4)
  - Myocardial infarction [Fatal]
  - Blood glucose increased [Unknown]
  - Tremor [Unknown]
  - Off label use [Unknown]
